FAERS Safety Report 12838022 (Version 1)
Quarter: 2016Q4

REPORT INFORMATION
  Report Type: Spontaneous
  Country: US (occurrence: US)
  Receive Date: 20161012
  Receipt Date: 20161012
  Transmission Date: 20170207
  Serious: No
  Sender: FDA-Public Use
  Company Number: US-PAR PHARMACEUTICAL, INC-2016SCPR015301

PATIENT

DRUGS (10)
  1. FENTANYL TRANSDERMAL SYSTEM [Suspect]
     Active Substance: FENTANYL
     Indication: PAIN MANAGEMENT
     Dosage: 1 PATCH, EVERY 72 HOURS
     Route: 062
     Dates: start: 20160318, end: 201603
  2. MESALAMINE. [Concomitant]
     Active Substance: MESALAMINE
     Indication: ENTEROCOLITIS
     Dosage: 450 ML, OD
     Route: 054
  3. MESALAMINE. [Concomitant]
     Active Substance: MESALAMINE
     Indication: CROHN^S DISEASE
  4. PREDNISONE. [Concomitant]
     Active Substance: PREDNISONE
     Indication: ENTEROCOLITIS
     Dosage: 1 DF, TID
     Route: 048
  5. MESALAMINE. [Concomitant]
     Active Substance: MESALAMINE
     Indication: CROHN^S DISEASE
  6. PREDNISONE. [Concomitant]
     Active Substance: PREDNISONE
     Indication: CROHN^S DISEASE
  7. MESALAMINE. [Concomitant]
     Active Substance: MESALAMINE
     Indication: ENTEROCOLITIS
     Dosage: 1 DF, OD
     Route: 048
  8. FLAGYL [Concomitant]
     Active Substance: METRONIDAZOLE\METRONIDAZOLE HYDROCHLORIDE
     Indication: ANTIBIOTIC THERAPY
     Dosage: 1 DF, OD
     Route: 048
  9. ZOFRAN [Concomitant]
     Active Substance: ONDANSETRON HYDROCHLORIDE
     Indication: NAUSEA
     Dosage: 1 DF, PRN
     Route: 048
  10. OXYCODONE [Concomitant]
     Active Substance: OXYCODONE
     Indication: PAIN MANAGEMENT
     Dosage: 1 DF, EVERY 8 HOURS, PRN
     Route: 048

REACTIONS (3)
  - No adverse event [Unknown]
  - Exposure via skin contact [Unknown]
  - Product quality issue [Unknown]

NARRATIVE: CASE EVENT DATE: 20160318
